FAERS Safety Report 7578020-8 (Version None)
Quarter: 2011Q3

REPORT INFORMATION
  Report Type: 
  Country: None (occurrence: None)
  Receive Date: 20110621
  Receipt Date: 20110607
  Transmission Date: 20111222
  Serious: Yes (Hospitalization)
  Sender: FDA-Public Use
  Company Number: TIF2011A00092

PATIENT
  Age: 50 Year
  Sex: Female

DRUGS (2)
  1. METFORMINA (METFORMIN) [Concomitant]
  2. ACTOS [Suspect]
     Indication: HYPERGLYCAEMIA
     Dosage: 30 MG (30 MG, 1 IN 1 D), OCCLUSIVE DRESSING TECHNIQUE
     Route: 046
     Dates: start: 20070817, end: 20110420

REACTIONS (2)
  - OPTIC NEURITIS [None]
  - PAPILLOEDEMA [None]
